FAERS Safety Report 15406518 (Version 1)
Quarter: 2018Q3

REPORT INFORMATION
  Report Type: Report from Study
  Country: CN (occurrence: CN)
  Receive Date: 20180920
  Receipt Date: 20180920
  Transmission Date: 20181010
  Serious: Yes (Other)
  Sender: FDA-Public Use
  Company Number: CN-ROCHE-2184016

PATIENT
  Sex: Female

DRUGS (3)
  1. DEXAMETHASONE. [Concomitant]
     Active Substance: DEXAMETHASONE
     Route: 048
  2. CAPECITABINE. [Suspect]
     Active Substance: CAPECITABINE
     Indication: BREAST CANCER METASTATIC
     Dosage: D1?14 Q3W
     Route: 048
  3. DOCETAXEL. [Suspect]
     Active Substance: DOCETAXEL
     Indication: BREAST CANCER METASTATIC
     Dosage: D1
     Route: 042

REACTIONS (12)
  - Platelet count decreased [Unknown]
  - Palmar-plantar erythrodysaesthesia syndrome [Unknown]
  - Diarrhoea [Unknown]
  - Renal impairment [Unknown]
  - Anaemia [Unknown]
  - Vomiting [Unknown]
  - Neurotoxicity [Unknown]
  - Stomatitis [Unknown]
  - Granulocytopenia [Unknown]
  - Hepatic function abnormal [Unknown]
  - Alopecia [Unknown]
  - Nausea [Unknown]
